FAERS Safety Report 25496026 (Version 2)
Quarter: 2025Q3

REPORT INFORMATION
  Report Type: Spontaneous
  Country: JP (occurrence: JP)
  Receive Date: 20250630
  Receipt Date: 20250801
  Transmission Date: 20251020
  Serious: Yes (Death)
  Sender: MERCK SHARP & DOHME LLC
  Company Number: JP-009507513-2300412

PATIENT
  Age: 47 Year
  Sex: Male

DRUGS (4)
  1. CILASTATIN SODIUM\IMIPENEM [Suspect]
     Active Substance: CILASTATIN SODIUM\IMIPENEM
     Indication: Mycobacterium abscessus infection
     Route: 041
     Dates: start: 202502, end: 20250621
  2. LINEZOLID [Concomitant]
     Active Substance: LINEZOLID
     Dates: start: 202502, end: 20250621
  3. AMIKACIN [Concomitant]
     Active Substance: AMIKACIN
     Dates: start: 202502, end: 20250621
  4. PREDONINE [Concomitant]
     Active Substance: PREDNISOLONE
     Indication: Pulmonary haemosiderosis

REACTIONS (2)
  - Systemic candida [Fatal]
  - Product use in unapproved indication [Unknown]

NARRATIVE: CASE EVENT DATE: 20250201
